FAERS Safety Report 8988303 (Version 1)
Quarter: 2012Q4

REPORT INFORMATION
  Report Type: Report from Study
  Country: CO (occurrence: CO)
  Receive Date: 20121227
  Receipt Date: 20121227
  Transmission Date: 20130627
  Serious: Yes (Hospitalization, Other)
  Sender: FDA-Public Use
  Company Number: CO-ROCHE-1170299

PATIENT
  Age: 51 Year
  Sex: Male

DRUGS (1)
  1. MYCOPHENOLATE MOFETIL [Suspect]
     Indication: RENAL TRANSPLANT
     Route: 048
     Dates: start: 20061221

REACTIONS (3)
  - Cholecystitis acute [Recovered/Resolved]
  - Splenic neoplasm malignancy unspecified [Recovered/Resolved]
  - Cholelithiasis [Recovered/Resolved]
